FAERS Safety Report 10626238 (Version 2)
Quarter: 2015Q2

REPORT INFORMATION
  Report Type: Spontaneous
  Country: PT (occurrence: PT)
  Receive Date: 20141204
  Receipt Date: 20150402
  Transmission Date: 20150821
  Serious: Yes (Other)
  Sender: FDA-Public Use
  Company Number: PT-ACTAVIS-2014-25888

PATIENT
  Age: 56 Year
  Sex: Female

DRUGS (6)
  1. EPIRRUBICINA [Concomitant]
     Active Substance: EPIRUBICIN
     Indication: BREAST CANCER
     Dosage: 2 MG, DAILY
     Route: 042
     Dates: start: 20150223, end: 20150223
  2. PREDNISOLONA                       /00016201/ [Concomitant]
     Indication: ALLERGY PROPHYLAXIS
     Dosage: 40 MG, UNK
     Route: 048
     Dates: start: 2014, end: 2014
  3. ONDANSETROM                        /00955301/ [Concomitant]
     Indication: ALLERGY PROPHYLAXIS
     Dosage: 8 MG, DAILY
     Route: 042
     Dates: start: 20150223, end: 20150223
  4. DEXAMETASONA                       /00016001/ [Concomitant]
     Indication: ALLERGY PROPHYLAXIS
     Dosage: 20 MG, DAILY
     Route: 042
     Dates: start: 20150223, end: 20150223
  5. PREDNISOLONA                       /00016201/ [Concomitant]
     Dosage: 80 MG, UNK
     Route: 048
     Dates: start: 20141104, end: 20141104
  6. DOCETAXEL ACTAVIS [Suspect]
     Active Substance: DOCETAXEL
     Indication: BREAST CANCER
     Dosage: 80 MG/M2, 1/ THREE WEEKS
     Route: 042
     Dates: start: 20141104

REACTIONS (5)
  - Dyspnoea [Recovered/Resolved]
  - Throat irritation [Recovered/Resolved]
  - Anaphylactic reaction [Recovered/Resolved]
  - Cough [Recovered/Resolved]
  - Erythema [Recovered/Resolved]

NARRATIVE: CASE EVENT DATE: 20141104
